FAERS Safety Report 7970486-4 (Version None)
Quarter: 2011Q4

REPORT INFORMATION
  Report Type: 
  Country: None (occurrence: None)
  Receive Date: 20111212
  Receipt Date: 20111207
  Transmission Date: 20120403
  Serious: Yes (Death)
  Sender: FDA-Public Use
  Company Number: PHHY2011JP107165

PATIENT
  Sex: Male

DRUGS (8)
  1. ACTONEL [Concomitant]
     Dosage: 17.5 MG, UNK
     Route: 048
     Dates: start: 20080924, end: 20101229
  2. GASMOTIN [Concomitant]
     Dosage: 15 MG, UNK
     Route: 048
     Dates: start: 20070501
  3. PROTECADIN [Concomitant]
     Dosage: 10 MG, UNK
     Route: 048
     Dates: start: 20090622
  4. MUCOSOLVAN [Concomitant]
     Dosage: 3 DF, UNK
     Route: 048
     Dates: start: 20070501
  5. ALISKIREN [Suspect]
     Indication: HYPERTENSION
     Dosage: 150 MG, QD
     Route: 048
     Dates: start: 20091221, end: 20101227
  6. CONIEL [Concomitant]
     Indication: HYPERTENSION
     Dosage: 8 MG, UNK
     Route: 048
     Dates: start: 20091221
  7. DOPS [Concomitant]
     Dosage: 300 MG, UNK
     Route: 048
     Dates: start: 20080924
  8. RIKKUNSHI-TO [Concomitant]
     Dosage: 6 DF, UNK
     Route: 048
     Dates: start: 20070523

REACTIONS (2)
  - DEATH [None]
  - BLOOD POTASSIUM INCREASED [None]
